FAERS Safety Report 4735712-3 (Version None)
Quarter: 2005Q3

REPORT INFORMATION
  Report Type: 
  Country: None (occurrence: None)
  Receive Date: 20050805
  Receipt Date: 20050725
  Transmission Date: 20060218
  Serious: Yes (Other)
  Sender: FDA-Public Use
  Company Number: JP-JNJFOC-20050604392

PATIENT
  Age: 56 Year
  Sex: Female

DRUGS (11)
  1. ITRIZOLE [Suspect]
     Route: 048
  2. ITRIZOLE [Suspect]
     Route: 048
  3. ITRIZOLE [Suspect]
     Indication: ONYCHOMYCOSIS
     Route: 048
  4. LIMAPROST ALFADEX [Concomitant]
     Indication: SPINAL COLUMN STENOSIS
     Route: 048
  5. LORNOXICAM [Concomitant]
     Route: 048
  6. SOFALCONE [Concomitant]
     Route: 048
  7. ALENDRONATE SODIUM [Concomitant]
     Indication: OSTEOPOROSIS
     Route: 048
  8. THEOPHYLLINE [Concomitant]
     Route: 048
  9. KETOTIFEN FUMARATE [Concomitant]
     Route: 048
  10. PRANLUKAST HYDRATE [Concomitant]
     Route: 048
  11. PRAVASTATIN SODIUM [Concomitant]
     Indication: HYPERLIPIDAEMIA
     Route: 048

REACTIONS (1)
  - PLATELET COUNT DECREASED [None]
